FAERS Safety Report 6921610-3 (Version None)
Quarter: 2010Q3

REPORT INFORMATION
  Report Type: 
  Country: None (occurrence: None)
  Receive Date: 20100812
  Receipt Date: 20100803
  Transmission Date: 20110219
  Serious: Yes (Hospitalization)
  Sender: FDA-Public Use
  Company Number: US-MERCK-1008USA00715

PATIENT
  Age: 72 Year
  Sex: Female

DRUGS (5)
  1. SINEMET [Suspect]
     Route: 048
  2. AMANTADINE HYDROCHLORIDE [Concomitant]
     Route: 065
  3. PANCREATIC EXTRACT [Concomitant]
     Route: 065
  4. MIRAPEX [Concomitant]
     Route: 065
  5. SINEMET CR [Suspect]
     Route: 048

REACTIONS (2)
  - GASTRIC DISORDER [None]
  - PANCREATIC DISORDER [None]
